FAERS Safety Report 21701933 (Version 2)
Quarter: 2022Q4

REPORT INFORMATION
  Report Type: Spontaneous
  Country: US (occurrence: US)
  Receive Date: 20221208
  Receipt Date: 20221214
  Transmission Date: 20230113
  Serious: No
  Sender: FDA-Public Use
  Company Number: US-PFIZER INC-PV202200119077

PATIENT

DRUGS (1)
  1. DEPO-ESTRADIOL [Suspect]
     Active Substance: ESTRADIOL CYPIONATE
     Dosage: UNK

REACTIONS (3)
  - Hypoacusis [Unknown]
  - Feeling abnormal [Unknown]
  - Product availability issue [Unknown]
